FAERS Safety Report 8214870-2 (Version None)
Quarter: 2012Q1

REPORT INFORMATION
  Report Type: 
  Country: None (occurrence: None)
  Receive Date: 20120316
  Receipt Date: 20120307
  Transmission Date: 20120608
  Serious: Yes (Hospitalization, Other)
  Sender: FDA-Public Use
  Company Number: US-JNJFOC-20120305227

PATIENT
  Sex: Female
  Weight: 57.3 kg

DRUGS (2)
  1. REMICADE [Suspect]
     Route: 042
     Dates: start: 20120113
  2. REMICADE [Suspect]
     Indication: CROHN'S DISEASE
     Route: 042
     Dates: start: 20110421

REACTIONS (1)
  - CROHN'S DISEASE [None]
